FAERS Safety Report 7378292-9 (Version None)
Quarter: 2011Q1

REPORT INFORMATION
  Report Type: 
  Country: None (occurrence: None)
  Receive Date: 20110328
  Receipt Date: 20110321
  Transmission Date: 20110831
  Serious: Yes (Hospitalization, Other)
  Sender: FDA-Public Use
  Company Number: US-ROCHE-763201

PATIENT
  Sex: Male
  Weight: 77.3 kg

DRUGS (12)
  1. ALBUTEROL [Concomitant]
     Dosage: INHALER
  2. BEVACIZUMAB [Suspect]
     Indication: GLIOBLASTOMA
     Route: 042
     Dates: start: 20110210, end: 20110225
  3. ACYCLOVIR SODIUM [Concomitant]
     Dosage: FREQUENCY: 1 APPLICATION DAILY
     Route: 061
  4. COLLAGEN [Concomitant]
     Dosage: COLLAGENASE CLOSTRIDIUM HISTOLYTICUM, 250 UNIT/GRAM ONCE DAILY.
  5. TEMODAR [Suspect]
     Indication: GLIOBLASTOMA
     Dosage: FREQUENCY: DAILY
     Route: 065
     Dates: start: 20110210, end: 20110225
  6. ZOFRAN [Concomitant]
     Indication: NAUSEA
     Dosage: 8 MG Q 8 HR AS NECESSARY
  7. SAHA [Suspect]
     Indication: GLIOBLASTOMA
     Dosage: FREQUENCY: 400 MG ONE WEEK ON ONE WEEK OFF
     Route: 048
     Dates: start: 20110210, end: 20110216
  8. ENOXAPARIN SODIUM [Concomitant]
     Route: 058
  9. LEVETIRACETAM [Concomitant]
     Route: 048
  10. LOVENOX [Concomitant]
  11. DEXAMETHASONE [Concomitant]
  12. MULTIVITAMIN NOS [Concomitant]

REACTIONS (8)
  - PNEUMONIA [None]
  - HYPOPHOSPHATAEMIA [None]
  - URINARY TRACT INFECTION [None]
  - INFECTION [None]
  - HYPOKALAEMIA [None]
  - GRAND MAL CONVULSION [None]
  - HAEMOGLOBIN [None]
  - HYPOXIA [None]
